FAERS Safety Report 26179978 (Version 1)
Quarter: 2025Q4

REPORT INFORMATION
  Report Type: Spontaneous
  Country: US (occurrence: US)
  Receive Date: 20251219
  Receipt Date: 20251219
  Transmission Date: 20260118
  Serious: No
  Sender: ELI LILLY AND COMPANY
  Company Number: US-ELI_LILLY_AND_COMPANY-US202511031290

PATIENT
  Age: 71 Year
  Sex: Female

DRUGS (4)
  1. DONANEMAB [Suspect]
     Active Substance: DONANEMAB
     Indication: Product used for unknown indication
     Dosage: UNK UNK, UNKNOWN (1ST)
     Route: 065
  2. DONANEMAB [Suspect]
     Active Substance: DONANEMAB
     Dosage: UNK UNK, UNKNOWN (2ND)
     Route: 065
  3. DONANEMAB [Suspect]
     Active Substance: DONANEMAB
     Dosage: UNK UNK, UNKNOWN (3RD)
     Route: 065
  4. DONANEMAB [Suspect]
     Active Substance: DONANEMAB
     Dosage: UNK UNK, UNKNOWN (4TH)
     Route: 065

REACTIONS (1)
  - Infusion related reaction [Unknown]
